FAERS Safety Report 15109130 (Version 1)
Quarter: 2018Q3

REPORT INFORMATION
  Report Type: Report from Study
  Country: None (occurrence: US)
  Receive Date: 20180705
  Receipt Date: 20180705
  Transmission Date: 20181010
  Serious: Yes (Other)
  Sender: FDA-Public Use
  Company Number: US-ABBVIE-18K-163-2407785-00

PATIENT
  Age: 65 Year
  Sex: Male

DRUGS (2)
  1. HUMIRA [Suspect]
     Active Substance: ADALIMUMAB
     Indication: COLITIS ULCERATIVE
     Route: 058
  2. MORPHINE [Suspect]
     Active Substance: MORPHINE
     Indication: PRODUCT USED FOR UNKNOWN INDICATION
     Route: 065

REACTIONS (13)
  - Gait disturbance [Unknown]
  - Chest injury [Unknown]
  - Ligament injury [Unknown]
  - Adverse drug reaction [Unknown]
  - Cardiac operation [Unknown]
  - Fall [Unknown]
  - Catheter site injury [Unknown]
  - Bladder catheterisation [Unknown]
  - Limb injury [Unknown]
  - Foot fracture [Unknown]
  - Colitis ulcerative [Unknown]
  - Tendon injury [Unknown]
  - Syncope [Unknown]

NARRATIVE: CASE EVENT DATE: 2012
